FAERS Safety Report 5624595-5 (Version None)
Quarter: 2008Q1

REPORT INFORMATION
  Report Type: 
  Country: None (occurrence: None)
  Receive Date: 20080213
  Receipt Date: 20080208
  Transmission Date: 20080703
  Serious: Yes (Hospitalization)
  Sender: FDA-Public Use
  Company Number: DE-ASTRAZENECA-2008PK00292

PATIENT
  Age: 64 Year
  Sex: Female
  Weight: 68.6 kg

DRUGS (11)
  1. SEROQUEL [Suspect]
     Route: 048
     Dates: start: 20060921, end: 20061011
  2. SEROQUEL [Suspect]
     Route: 048
     Dates: start: 20061012, end: 20061018
  3. SEROQUEL [Suspect]
     Route: 048
     Dates: start: 20061019, end: 20061022
  4. SEROQUEL [Suspect]
     Route: 048
     Dates: start: 20061023, end: 20061209
  5. SEROQUEL [Suspect]
     Route: 048
     Dates: start: 20061210, end: 20061213
  6. BISOHEXAL [Concomitant]
     Route: 048
     Dates: end: 20061216
  7. BISOHEXAL [Concomitant]
     Route: 048
     Dates: start: 20061217
  8. CYMBALTA [Concomitant]
     Route: 048
     Dates: start: 20060911, end: 20061011
  9. CYMBALTA [Concomitant]
     Route: 048
     Dates: start: 20061012, end: 20061108
  10. CYMBALTA [Concomitant]
     Route: 048
     Dates: start: 20061109, end: 20061214
  11. BEPANTHEN [Concomitant]
     Route: 048
     Dates: start: 20061206, end: 20061213

REACTIONS (2)
  - ACUTE MYOCARDIAL INFARCTION [None]
  - TYPE 2 DIABETES MELLITUS [None]
